FAERS Safety Report 15189830 (Version 15)
Quarter: 2025Q2

REPORT INFORMATION
  Report Type: Spontaneous
  Country: US (occurrence: US)
  Receive Date: 20180724
  Receipt Date: 20250612
  Transmission Date: 20250716
  Serious: No
  Sender: PFIZER
  Company Number: US-PFIZER INC-2018296121

PATIENT
  Age: 74 Year
  Sex: Male
  Weight: 75.737 kg

DRUGS (8)
  1. BOSULIF [Suspect]
     Active Substance: BOSUTINIB MONOHYDRATE
     Indication: Chronic myeloid leukaemia
     Dosage: 100 MG, 1X/DAY
     Dates: start: 20180724
  2. BOSULIF [Suspect]
     Active Substance: BOSUTINIB MONOHYDRATE
     Indication: Lung neoplasm malignant
     Dosage: 300 MG, 1X/DAY (3 TABLET ORALLY EVERY DAY. SWALLOW WHOLE; DO NOT BREAK TABLET)
     Route: 048
  3. BOSULIF [Suspect]
     Active Substance: BOSUTINIB MONOHYDRATE
     Indication: Metastases to central nervous system
     Dosage: 200 MG, DAILY (2 TAB ORALLY DAILY/ 2 TABLET ORALLY EVERY DAY)
     Route: 048
  4. BOSULIF [Suspect]
     Active Substance: BOSUTINIB MONOHYDRATE
     Dosage: 300 MG, 2X/DAY
     Route: 048
  5. BOSULIF [Suspect]
     Active Substance: BOSUTINIB MONOHYDRATE
  6. BOSULIF [Suspect]
     Active Substance: BOSUTINIB MONOHYDRATE
     Dosage: 200 MG, DAILY (TWO TABLETS ONCE DAILY)
     Route: 048
  7. HYDREA [Concomitant]
     Active Substance: HYDROXYUREA
     Dosage: 500 MG, DAILY
     Route: 048
  8. MEDROL [Concomitant]
     Active Substance: METHYLPREDNISOLONE
     Route: 048

REACTIONS (9)
  - Thrombocytosis [Unknown]
  - Gout [Unknown]
  - Feeding disorder [Unknown]
  - Weight decreased [Unknown]
  - Tooth disorder [Unknown]
  - Blood calcium decreased [Unknown]
  - Diarrhoea [Unknown]
  - Oedema peripheral [Unknown]
  - Blood creatinine increased [Unknown]

NARRATIVE: CASE EVENT DATE: 20211201
